FAERS Safety Report 7457396-6 (Version None)
Quarter: 2011Q2

REPORT INFORMATION
  Report Type: 
  Country: None (occurrence: None)
  Receive Date: 20110504
  Receipt Date: 20110420
  Transmission Date: 20111010
  Serious: Yes (Other)
  Sender: FDA-Public Use
  Company Number: SE-MYLANLABS-2011S1008437

PATIENT
  Age: 85 Year
  Sex: Female

DRUGS (7)
  1. ALENDRONIC ACID [Suspect]
     Route: 048
     Dates: start: 20050601, end: 20090201
  2. CALCIUM [Concomitant]
     Route: 065
  3. SELEGILINE [Concomitant]
     Route: 065
  4. LEVODOPA [Concomitant]
     Route: 065
  5. TRAMADOL [Concomitant]
     Route: 065
     Dates: start: 20050301, end: 20061201
  6. ENALAPRIL [Concomitant]
     Route: 065
     Dates: start: 19980101, end: 20080101
  7. ASPIRIN [Concomitant]
     Route: 065
     Dates: start: 19970101, end: 20080301

REACTIONS (1)
  - MOUTH ULCERATION [None]
